FAERS Safety Report 8962975 (Version 1)
Quarter: 2012Q4

REPORT INFORMATION
  Report Type: 
  Country: US (occurrence: US)
  Receive Date: 20121213
  Receipt Date: 20121213
  Transmission Date: 20130627
  Serious: Yes (Other)
  Sender: FDA-Public Use
  Company Number: US-PFIZER INC-2012312187

PATIENT
  Age: 67 Year
  Sex: Female
  Weight: 58.96 kg

DRUGS (1)
  1. DETROL LA [Suspect]
     Indication: BLADDER INCONTINENCE
     Dosage: 4 mg, 1x/day
     Route: 048

REACTIONS (6)
  - Dementia Alzheimer^s type [Not Recovered/Not Resolved]
  - Back disorder [Unknown]
  - Depression [Unknown]
  - Pain [Unknown]
  - Sleep disorder [Unknown]
  - Blood iron decreased [Unknown]
